FAERS Safety Report 18687428 (Version 1)
Quarter: 2020Q4

REPORT INFORMATION
  Report Type: Spontaneous
  Country: JP (occurrence: JP)
  Receive Date: 20201231
  Receipt Date: 20201231
  Transmission Date: 20210114
  Serious: Yes (Hospitalization, Other)
  Sender: FDA-Public Use
  Company Number: JP-TEVA-2020-JP-1865070

PATIENT
  Age: 64 Year
  Sex: Male

DRUGS (5)
  1. PREDNISOLONE. [Suspect]
     Active Substance: PREDNISOLONE
     Indication: SYSTEMIC SCLERODERMA
  2. VONOPRAZAN [Suspect]
     Active Substance: VONOPRAZAN
     Indication: PROPHYLAXIS
     Dosage: 20 MILLIGRAM DAILY; DAILY
     Route: 065
  3. PREDNISOLONE. [Suspect]
     Active Substance: PREDNISOLONE
     Indication: RHEUMATOID ARTHRITIS
     Dosage: 12 MILLIGRAM DAILY; DAILY
     Route: 065
  4. ABATACEPT [Suspect]
     Active Substance: ABATACEPT
     Indication: RHEUMATOID ARTHRITIS
     Dosage: 125MG WEEKLY
     Route: 065
  5. ABATACEPT [Suspect]
     Active Substance: ABATACEPT
     Indication: SYSTEMIC SCLERODERMA

REACTIONS (6)
  - Oesophageal candidiasis [Recovering/Resolving]
  - Malnutrition [Recovering/Resolving]
  - Feeding disorder [Recovering/Resolving]
  - Anaemia [Recovering/Resolving]
  - Oesophageal ulcer [Recovering/Resolving]
  - Oesophageal ulcer haemorrhage [Recovering/Resolving]
